FAERS Safety Report 17700817 (Version 2)
Quarter: 2020Q2

REPORT INFORMATION
  Report Type: Spontaneous
  Country: ES (occurrence: ES)
  Receive Date: 20200424
  Receipt Date: 20200506
  Transmission Date: 20200714
  Serious: Yes (Life-Threatening, Hospitalization, Other)
  Sender: FDA-Public Use
  Company Number: ES-AUROBINDO-AUR-APL-2018-057164

PATIENT
  Age: 53 Year
  Sex: Female
  Weight: 67 kg

DRUGS (25)
  1. REZOLSTA [Suspect]
     Active Substance: COBICISTAT\DARUNAVIR ETHANOLATE
     Indication: HIV INFECTION
     Dosage: UNK
     Route: 048
     Dates: start: 20180501, end: 20181004
  2. BOSENTAN FILM COATED TABLETS [Suspect]
     Active Substance: BOSENTAN
     Dosage: 125 MILLIGRAM, TWO TIMES A DAY
     Route: 065
     Dates: start: 201801
  3. RALTEGRAVIR. [Suspect]
     Active Substance: RALTEGRAVIR
     Dosage: 400 MILLIGRAM, TWO TIMES A DAY
     Route: 048
     Dates: start: 20180122, end: 20181004
  4. ETRAVIRINE [Concomitant]
     Active Substance: ETRAVIRINE
     Indication: PRODUCT USED FOR UNKNOWN INDICATION
     Dosage: 200 MILLIGRAM, TWO TIMES A DAY
     Route: 065
  5. ISENTRESS [Concomitant]
     Active Substance: RALTEGRAVIR POTASSIUM
     Indication: HIV INFECTION
     Dosage: UNK
     Route: 048
     Dates: start: 20180122, end: 20181004
  6. BOSENTAN FILM COATED TABLETS [Suspect]
     Active Substance: BOSENTAN
     Indication: PULMONARY ARTERIAL HYPERTENSION
     Dosage: 250 MILLIGRAM, ONCE A DAY
     Route: 065
     Dates: start: 201801
  7. COBICISTAT;DARUNAVIR [Suspect]
     Active Substance: COBICISTAT\DARUNAVIR ETHANOLATE
     Indication: HEPATITIS C
     Dosage: 950 MILLIGRAM, ONCE A DAY
     Route: 065
     Dates: start: 201804, end: 201809
  8. GLECAPREVIR;PIBRENTASVIR [Interacting]
     Active Substance: GLECAPREVIR\PIBRENTASVIR
     Indication: HEPATITIS C
     Dosage: UNK
     Route: 005
     Dates: start: 201801
  9. BOSENTAN. [Interacting]
     Active Substance: BOSENTAN
     Indication: PRODUCT USED FOR UNKNOWN INDICATION
     Dosage: 250 MILLIGRAM, ONCE A DAY
     Route: 065
     Dates: start: 201801
  10. BOSENTAN. [Interacting]
     Active Substance: BOSENTAN
     Indication: PULMONARY ARTERIAL HYPERTENSION
     Dosage: UNK
     Route: 065
     Dates: start: 201804
  11. TADALAFIL. [Suspect]
     Active Substance: TADALAFIL
     Indication: PULMONARY ARTERIAL HYPERTENSION
     Dosage: 20 MILLIGRAM, ONCE A DAY
     Route: 065
     Dates: start: 201801
  12. LOPINAVIR + RITONAVIR [Concomitant]
     Active Substance: LOPINAVIR\RITONAVIR
     Indication: PRODUCT USED FOR UNKNOWN INDICATION
     Dosage: 400/100 MG, TWO TIMES A DAY
     Route: 065
  13. BOSENTAN FILM COATED TABLETS [Suspect]
     Active Substance: BOSENTAN
     Dosage: 125 MILLIGRAM, TWO TIMES A DAY
     Route: 048
     Dates: start: 20180409, end: 20181008
  14. RALTEGRAVIR. [Suspect]
     Active Substance: RALTEGRAVIR
     Indication: HIV INFECTION
     Dosage: 800 MILLIGRAM, ONCE A DAY
     Route: 065
  15. LOPINAVIR + RITONAVIR [Concomitant]
     Active Substance: LOPINAVIR\RITONAVIR
     Dosage: 800 MILLIGRAM, ONCE A DAY
     Route: 065
     Dates: start: 201801
  16. RILPIVIRINE [Suspect]
     Active Substance: RILPIVIRINE
     Indication: ANTIRETROVIRAL THERAPY
     Dosage: 25 MILLIGRAM, ONCE A DAY
     Route: 065
     Dates: start: 201801, end: 201804
  17. RALTEGRAVIR. [Suspect]
     Active Substance: RALTEGRAVIR
     Indication: HEPATITIS C
     Dosage: UNK
     Route: 065
     Dates: start: 201801
  18. TRACLEER [Suspect]
     Active Substance: BOSENTAN
     Indication: PULMONARY ARTERIAL HYPERTENSION
     Dosage: 62.5 MILLIGRAM, TWO TIMES A DAY
     Route: 048
     Dates: start: 20180409, end: 20181019
  19. BOSENTAN. [Concomitant]
     Active Substance: BOSENTAN
     Indication: PULMONARY ARTERIAL HYPERTENSION
     Dosage: 125 MILLIGRAM, TWO TIMES A DAY
     Route: 048
     Dates: start: 20180409, end: 20181008
  20. BOSENTAN FILM COATED TABLETS [Suspect]
     Active Substance: BOSENTAN
     Dosage: 62.5 MILLIGRAM, TWO TIMES A DAY
     Route: 048
     Dates: start: 20180409, end: 20181019
  21. TADALAFIL. [Suspect]
     Active Substance: TADALAFIL
     Dosage: UNK
     Route: 065
     Dates: start: 201804
  22. COBICISTAT;DARUNAVIR [Suspect]
     Active Substance: COBICISTAT\DARUNAVIR ETHANOLATE
     Indication: HIV INFECTION
     Dosage: 150/800MG
     Route: 048
     Dates: start: 20180501, end: 20181004
  23. LOPINAVIR + RITONAVIR [Suspect]
     Active Substance: LOPINAVIR\RITONAVIR
     Indication: HIV INFECTION
     Dosage: 400 MILLIGRAM, ONCE A DAY
     Route: 048
     Dates: start: 201801
  24. LOPINAVIR + RITONAVIR [Suspect]
     Active Substance: LOPINAVIR\RITONAVIR
     Dosage: 800 MILLIGRAM, ONCE A DAY
     Route: 065
     Dates: start: 201801
  25. DOLUTEGRAVIR [Concomitant]
     Active Substance: DOLUTEGRAVIR
     Indication: PRODUCT USED FOR UNKNOWN INDICATION
     Dosage: 50 MILLIGRAM, TWO TIMES A DAY
     Route: 065

REACTIONS (10)
  - Blood HIV RNA increased [Recovering/Resolving]
  - Cardiac failure [Recovering/Resolving]
  - Drug interaction [Recovering/Resolving]
  - Drug resistance [Recovering/Resolving]
  - Toxicity to various agents [Recovering/Resolving]
  - Virologic failure [Recovering/Resolving]
  - Fluid retention [Recovering/Resolving]
  - Cardiac failure congestive [Recovering/Resolving]
  - Cardiac failure congestive [Recovered/Resolved]
  - Respiratory failure [Recovering/Resolving]

NARRATIVE: CASE EVENT DATE: 2018
